FAERS Safety Report 16838348 (Version 1)
Quarter: 2019Q3

REPORT INFORMATION
  Report Type: Spontaneous
  Country: US (occurrence: US)
  Receive Date: 20190923
  Receipt Date: 20190923
  Transmission Date: 20191005
  Serious: No
  Sender: FDA-Public Use
  Company Number: US-MYLANLABS-2019M1084826

PATIENT
  Sex: Male

DRUGS (1)
  1. SCOPOLAMINE TRANSDERMAL SYSTEM [Suspect]
     Active Substance: SCOPOLAMINE
     Indication: EUSTACHIAN TUBE PATULOUS
     Dosage: 1 MILLIGRAM, Q3D
     Route: 062

REACTIONS (2)
  - Off label use [Unknown]
  - Product adhesion issue [Unknown]
